FAERS Safety Report 16730076 (Version 1)
Quarter: 2019Q3

REPORT INFORMATION
  Report Type: Report from Study
  Country: FR (occurrence: FR)
  Receive Date: 20190822
  Receipt Date: 20190822
  Transmission Date: 20191005
  Serious: Yes (Hospitalization)
  Sender: FDA-Public Use
  Company Number: FR-PACIRA-201500169

PATIENT
  Age: 60 Year
  Sex: Female

DRUGS (2)
  1. DEPOCYT [Suspect]
     Active Substance: CYTARABINE
     Indication: METASTASES TO MENINGES
     Dosage: 50 MG, UNK, FREQUENCY : UNK
     Route: 037
     Dates: start: 20141202
  2. ENDOXAN [Suspect]
     Active Substance: CYCLOPHOSPHAMIDE
     Indication: METASTASES TO MENINGES
     Dosage: 100 MG, UNK, FREQUENCY : UNK
     Dates: start: 20150101, end: 20150203

REACTIONS (1)
  - Intracranial pressure increased [Unknown]

NARRATIVE: CASE EVENT DATE: 20150202
